FAERS Safety Report 24008947 (Version 1)
Quarter: 2024Q2

REPORT INFORMATION
  Report Type: Report from Study
  Country: CH (occurrence: CH)
  Receive Date: 20240625
  Receipt Date: 20240625
  Transmission Date: 20240715
  Serious: Yes (Death, Life-Threatening)
  Sender: FDA-Public Use
  Company Number: CH-BoehringerIngelheim-2024-BI-029839

PATIENT
  Age: 80 Year
  Sex: Male

DRUGS (1)
  1. METALYSE [Suspect]
     Active Substance: TENECTEPLASE
     Indication: Ischaemic stroke
     Dosage: DAILY DOSE: 0.6 MILLILITRE(S), FORM STRENGTH: 3 MILLIGRAM
     Route: 040
     Dates: start: 20240109

REACTIONS (2)
  - Pneumonia aspiration [Fatal]
  - Subarachnoid haemorrhage [Recovered/Resolved]

NARRATIVE: CASE EVENT DATE: 20240109
